FAERS Safety Report 15808344 (Version 2)
Quarter: 2019Q1

REPORT INFORMATION
  Report Type: Report from Study
  Country: US (occurrence: US)
  Receive Date: 20190110
  Receipt Date: 20190122
  Transmission Date: 20190417
  Serious: Yes (Hospitalization)
  Sender: FDA-Public Use
  Company Number: US-ACTELION-A-NJ2018-183642

PATIENT
  Age: 63 Year
  Sex: Female
  Weight: 78.5 kg

DRUGS (10)
  1. UPTRAVI [Suspect]
     Active Substance: SELEXIPAG
     Dosage: UNK
     Route: 048
  2. UPTRAVI [Suspect]
     Active Substance: SELEXIPAG
     Dosage: 1400 MCG, BID
     Route: 048
     Dates: start: 20181225
  3. UPTRAVI [Suspect]
     Active Substance: SELEXIPAG
     Indication: PULMONARY ARTERIAL HYPERTENSION
     Dosage: 600 MCG, BID
     Route: 048
  4. AMLODIPINE [Concomitant]
     Active Substance: AMLODIPINE BESYLATE
  5. LETAIRIS [Concomitant]
     Active Substance: AMBRISENTAN
  6. ADCIRCA [Concomitant]
     Active Substance: TADALAFIL
  7. NORVASC [Concomitant]
     Active Substance: AMLODIPINE BESYLATE
  8. UPTRAVI [Suspect]
     Active Substance: SELEXIPAG
     Dosage: 1200 MCG, BID
     Route: 048
  9. TADALAFIL. [Concomitant]
     Active Substance: TADALAFIL
  10. COREG [Concomitant]
     Active Substance: CARVEDILOL

REACTIONS (15)
  - Pain in jaw [Unknown]
  - Influenza like illness [Unknown]
  - Hypotension [Not Recovered/Not Resolved]
  - Diarrhoea [Unknown]
  - Lethargy [Unknown]
  - Pain [Not Recovered/Not Resolved]
  - Oxygen saturation decreased [Unknown]
  - Headache [Unknown]
  - Myalgia [Unknown]
  - Musculoskeletal chest pain [Unknown]
  - Somnolence [Unknown]
  - Accident [Unknown]
  - Injury [Unknown]
  - Contusion [Unknown]
  - Dyspnoea [Unknown]

NARRATIVE: CASE EVENT DATE: 20181225
